FAERS Safety Report 10219459 (Version 1)
Quarter: 2014Q2

REPORT INFORMATION
  Report Type: Spontaneous
  Country: US (occurrence: None)
  Receive Date: 20140604
  Receipt Date: 20140604
  Transmission Date: 20141212
  Serious: Yes (Other)
  Sender: FDA-Public Use
  Company Number: None

PATIENT
  Age: 58 Year
  Sex: Female

DRUGS (2)
  1. XARELTO [Suspect]
     Indication: ANTICOAGULANT THERAPY
     Dosage: XARELTO, ONCE DAILY, TAKEN BY MOUTH
     Route: 048
  2. XARELTO [Suspect]
     Indication: POSTOPERATIVE CARE
     Dosage: XARELTO, ONCE DAILY, TAKEN BY MOUTH
     Route: 048

REACTIONS (2)
  - Haematoma [None]
  - Post procedural complication [None]
